FAERS Safety Report 7401956-5 (Version None)
Quarter: 2011Q2

REPORT INFORMATION
  Report Type: 
  Country: None (occurrence: None)
  Receive Date: 20110408
  Receipt Date: 20110404
  Transmission Date: 20111010
  Serious: Yes (Hospitalization)
  Sender: FDA-Public Use
  Company Number: BR-PFIZER INC-2011061535

PATIENT
  Age: 71 Year
  Sex: Male
  Weight: 110 kg

DRUGS (4)
  1. LIPITOR [Suspect]
     Indication: HYPERTENSION
     Dosage: 40 MG, 1X/DAY
     Dates: start: 20110301, end: 20110301
  2. MODURETIC 5-50 [Concomitant]
     Dosage: 2.5 MG, UNK
  3. LIPITOR [Suspect]
     Indication: DYSLIPIDAEMIA
     Dosage: 20 MG, 1X/DAY
     Route: 048
     Dates: start: 20050101, end: 20110225
  4. NORVASC [Concomitant]
     Dosage: 5 MG, UNK

REACTIONS (6)
  - AMNESIA [None]
  - BLOOD TRIGLYCERIDES INCREASED [None]
  - AGGRESSION [None]
  - NERVOUSNESS [None]
  - BLOOD CHOLESTEROL INCREASED [None]
  - DISORIENTATION [None]
